FAERS Safety Report 12888194 (Version 3)
Quarter: 2016Q4

REPORT INFORMATION
  Report Type: Spontaneous
  Country: FR (occurrence: FR)
  Receive Date: 20161027
  Receipt Date: 20161215
  Transmission Date: 20170207
  Serious: Yes (Hospitalization, Other)
  Sender: FDA-Public Use
  Company Number: FR-CONCORDIA PHARMACEUTICALS INC.-GSH201610-005356

PATIENT
  Age: 67 Year
  Sex: Male

DRUGS (28)
  1. PARACETAMOL [Suspect]
     Active Substance: ACETAMINOPHEN
     Indication: PRODUCT USED FOR UNKNOWN INDICATION
     Dates: start: 20160804, end: 20160806
  2. PARACETAMOL [Suspect]
     Active Substance: ACETAMINOPHEN
     Dates: start: 20160902, end: 20160904
  3. DIFFU K [Suspect]
     Active Substance: POTASSIUM CHLORIDE
     Dates: start: 20160914, end: 20160923
  4. DIFFU K [Suspect]
     Active Substance: POTASSIUM CHLORIDE
     Dates: start: 20160929
  5. DIFFU K [Suspect]
     Active Substance: POTASSIUM CHLORIDE
     Indication: PRODUCT USED FOR UNKNOWN INDICATION
     Route: 065
     Dates: start: 20160730, end: 20160814
  6. PRODILANTIN [Concomitant]
     Active Substance: FOSPHENYTOIN SODIUM
     Dates: start: 20160703
  7. AMIKACIN [Concomitant]
     Active Substance: AMIKACIN
     Dates: start: 20160714
  8. PARACETAMOL [Suspect]
     Active Substance: ACETAMINOPHEN
     Dates: start: 20160820, end: 20160901
  9. SOLUDACTONE [Suspect]
     Active Substance: CANRENOATE POTASSIUM\TROMETHAMINE
     Indication: HYPOKALAEMIA
     Route: 042
     Dates: start: 20160929, end: 20160929
  10. TIORFAN [Suspect]
     Active Substance: RACECADOTRIL
     Route: 048
     Dates: start: 20160930, end: 20161004
  11. BISOCE [Suspect]
     Active Substance: BISOPROLOL
     Indication: PRODUCT USED FOR UNKNOWN INDICATION
     Route: 048
     Dates: start: 20160803
  12. INDAPAMIDE/PERINDOPRIL [Suspect]
     Active Substance: INDAPAMIDE\PERINDOPRIL
     Dates: start: 20160803
  13. PROPOFOL. [Concomitant]
     Active Substance: PROPOFOL
     Dates: start: 20160726
  14. NICARDIPINE [Concomitant]
     Active Substance: NICARDIPINE
     Dates: start: 20160912, end: 20160915
  15. TIORFAN [Suspect]
     Active Substance: RACECADOTRIL
     Indication: DIARRHOEA
     Route: 048
     Dates: start: 20160908, end: 20160908
  16. AMLODIPINE [Suspect]
     Active Substance: AMLODIPINE BESYLATE
     Indication: PRODUCT USED FOR UNKNOWN INDICATION
     Route: 048
     Dates: start: 20160802
  17. PERINDOPRIL [Suspect]
     Active Substance: PERINDOPRIL
     Indication: PRODUCT USED FOR UNKNOWN INDICATION
     Route: 048
     Dates: start: 20160806
  18. FLUOXETINE [Suspect]
     Active Substance: FLUOXETINE HYDROCHLORIDE
     Indication: PRODUCT USED FOR UNKNOWN INDICATION
     Route: 048
     Dates: start: 20160804
  19. PHLOROGLUCINOL [Suspect]
     Active Substance: PHLOROGLUCINOL
     Indication: PRODUCT USED FOR UNKNOWN INDICATION
     Route: 042
     Dates: start: 20160902, end: 20160927
  20. LOVENOX [Suspect]
     Active Substance: ENOXAPARIN SODIUM
     Indication: PRODUCT USED FOR UNKNOWN INDICATION
     Route: 058
     Dates: start: 20160720
  21. DIFFU K [Suspect]
     Active Substance: POTASSIUM CHLORIDE
     Dates: start: 20160820, end: 20160826
  22. PARACETAMOL [Suspect]
     Active Substance: ACETAMINOPHEN
     Dates: start: 20160910, end: 20160927
  23. PIPERACILLIN/TAZOBACTAM [Suspect]
     Active Substance: PIPERACILLIN SODIUM\TAZOBACTAM SODIUM
     Indication: OSTEITIS
     Route: 042
     Dates: start: 20160910, end: 20161004
  24. ZAMUDOL [Concomitant]
     Active Substance: TRAMADOL HYDROCHLORIDE
     Dates: start: 20160906
  25. POTASSIUM CHLORIDE. [Concomitant]
     Active Substance: POTASSIUM CHLORIDE
     Dates: start: 20160913
  26. ALFUZOSIN [Suspect]
     Active Substance: ALFUZOSIN
     Indication: PRODUCT USED FOR UNKNOWN INDICATION
     Route: 048
     Dates: start: 20160727
  27. ALPRAZOLAM. [Suspect]
     Active Substance: ALPRAZOLAM
     Indication: PRODUCT USED FOR UNKNOWN INDICATION
     Route: 048
     Dates: start: 20160929, end: 20161005
  28. RANITIDINE. [Concomitant]
     Active Substance: RANITIDINE
     Dates: start: 20160902

REACTIONS (5)
  - Rash papular [Recovering/Resolving]
  - Eosinophilia [Recovering/Resolving]
  - Rash erythematous [Recovering/Resolving]
  - Drug reaction with eosinophilia and systemic symptoms [Unknown]
  - Rash pruritic [Recovering/Resolving]

NARRATIVE: CASE EVENT DATE: 20160930
